FAERS Safety Report 5863300-4 (Version None)
Quarter: 2008Q3

REPORT INFORMATION
  Report Type: 
  Country: None (occurrence: None)
  Receive Date: 20080828
  Receipt Date: 20080317
  Transmission Date: 20090109
  Serious: No
  Sender: FDA-Public Use
  Company Number: US-AMGEN-KDL270047

PATIENT

DRUGS (1)
  1. KEPIVANCE [Suspect]
     Indication: BONE MARROW TRANSPLANT

REACTIONS (3)
  - DERMATITIS [None]
  - SKIN EXFOLIATION [None]
  - SKIN REACTION [None]
